FAERS Safety Report 10952010 (Version 1)
Quarter: 2015Q1

REPORT INFORMATION
  Report Type: Report from Study
  Country: FR (occurrence: FR)
  Receive Date: 20150325
  Receipt Date: 20150325
  Transmission Date: 20150721
  Serious: Yes (Hospitalization)
  Sender: FDA-Public Use
  Company Number: FR-ROCHE-1500221

PATIENT
  Age: 36 Year
  Sex: Female
  Weight: 81 kg

DRUGS (14)
  1. BEVACIZUMAB [Suspect]
     Active Substance: BEVACIZUMAB
     Indication: GERM CELL NEOPLASM
  2. TARGOCID [Concomitant]
     Active Substance: TEICOPLANIN
  3. IFOSFAMIDE. [Suspect]
     Active Substance: IFOSFAMIDE
     Indication: GERM CELL NEOPLASM
  4. TIENAM [Concomitant]
     Active Substance: CILASTATIN SODIUM\IMIPENEM
  5. OFLOCET [Concomitant]
     Active Substance: OFLOXACIN
  6. BLEOMYCIN [Concomitant]
     Active Substance: BLEOMYCIN SULFATE
  7. CISPLATINE [Concomitant]
     Active Substance: CISPLATIN
  8. BEVACIZUMAB [Suspect]
     Active Substance: BEVACIZUMAB
     Indication: SEMINOMA
     Dosage: ON 28/OCT/2014, HER LAST DOSE OF BEVACIZUMAB WAS 7.5 MG/KG
     Route: 065
     Dates: start: 20141028
  9. ETOPOSIDE. [Suspect]
     Active Substance: ETOPOSIDE
     Indication: SEMINOMA
     Dosage: ON 02/NOV/2014,  LAST DOSE OF ETOPOSIDE WAS 150 MG/M2
     Route: 065
     Dates: start: 20141029
  10. CARBOPLATIN. [Suspect]
     Active Substance: CARBOPLATIN
     Indication: SEMINOMA
     Dosage: ON 02/NOV/2014, LAST DOSE OF CARBOPLATIN WAS 4 AUC
     Route: 065
     Dates: start: 20141029
  11. IFOSFAMIDE. [Suspect]
     Active Substance: IFOSFAMIDE
     Indication: SEMINOMA
     Dosage: ON 02/NOV/2014,  LAST DOSE OF LFOSFAMIDE WAS 2400 MG/M2
     Route: 065
     Dates: start: 20141029
  12. CARBOPLATIN. [Suspect]
     Active Substance: CARBOPLATIN
     Indication: GERM CELL NEOPLASM
  13. ETOPOSIDE. [Suspect]
     Active Substance: ETOPOSIDE
     Indication: GERM CELL NEOPLASM
  14. DEXERYL (FRANCE) [Concomitant]
     Active Substance: GLYCERIN\PARAFFIN
     Indication: EPIDERMOLYSIS

REACTIONS (1)
  - Toxic skin eruption [Recovered/Resolved]

NARRATIVE: CASE EVENT DATE: 20141107
